FAERS Safety Report 9699146 (Version 2)
Quarter: 2015Q3

REPORT INFORMATION
  Report Type: Spontaneous
  Country: US (occurrence: US)
  Receive Date: 20131120
  Receipt Date: 20150803
  Transmission Date: 20151125
  Serious: No
  Sender: FDA-Public Use
  Company Number: US-GILEAD-2007-0014694

PATIENT
  Age: 76 Year
  Sex: Female
  Weight: 58.97 kg

DRUGS (18)
  1. LETAIRIS [Suspect]
     Active Substance: AMBRISENTAN
     Indication: PULMONARY ARTERIAL HYPERTENSION
     Route: 048
     Dates: end: 20071209
  2. ASPIRIN. [Concomitant]
     Active Substance: ASPIRIN
     Dosage: UD
     Route: 048
  3. ACTONEL [Concomitant]
     Active Substance: RISEDRONATE SODIUM
     Dosage: UD
     Route: 048
  4. TORSEMIDE. [Concomitant]
     Active Substance: TORSEMIDE
     Dosage: UD
     Route: 048
  5. DIGOXIN. [Concomitant]
     Active Substance: DIGOXIN
     Dosage: UD
     Route: 048
  6. RYTHMOL [Concomitant]
     Active Substance: PROPAFENONE HYDROCHLORIDE
     Dosage: UD
     Route: 048
  7. ENULOSE [Concomitant]
     Active Substance: LACTULOSE
     Dosage: UD
     Route: 048
  8. IRON [Concomitant]
     Active Substance: IRON
     Dosage: UD
     Route: 048
  9. VITAMIN E [Concomitant]
     Active Substance: .ALPHA.-TOCOPHEROL
     Dosage: UD
     Route: 048
  10. COREG [Concomitant]
     Active Substance: CARVEDILOL
     Dosage: UD
     Route: 048
  11. AMARYL [Concomitant]
     Active Substance: GLIMEPIRIDE
     Dosage: UD
     Route: 048
  12. ISOSORBIDE DINITRATE/HYDRALAZINE HYDROCHLORIDE [Concomitant]
     Dosage: UD
     Route: 048
  13. MULTIVITAMIN [Concomitant]
     Active Substance: VITAMINS
     Dosage: UD
     Route: 048
  14. COUMADIN [Concomitant]
     Active Substance: WARFARIN SODIUM
     Dosage: UD
     Route: 048
  15. ACIPHEX [Concomitant]
     Active Substance: RABEPRAZOLE SODIUM
     Route: 048
  16. COLCHICINE. [Concomitant]
     Active Substance: COLCHICINE
     Dosage: UD
     Route: 048
  17. ADVANCED CALCIUM [Concomitant]
     Dosage: UD
     Route: 048
  18. CHLOROPHYLL [Concomitant]
     Dosage: UD
     Route: 048

REACTIONS (1)
  - Fluid overload [Unknown]
